FAERS Safety Report 8479843-3 (Version None)
Quarter: 2012Q2

REPORT INFORMATION
  Report Type: 
  Country: None (occurrence: None)
  Receive Date: 20120629
  Receipt Date: 20120619
  Transmission Date: 20120825
  Serious: Yes (Other)
  Sender: FDA-Public Use
  Company Number: JP-VERTEX PHARMACEUTICALS INC.-AE-2012-005164

PATIENT
  Age: 67 Year
  Sex: Female

DRUGS (17)
  1. PEGINTERFERON ALFA-2B [Concomitant]
     Route: 051
     Dates: start: 20120511
  2. TELAVIC (TELAPREVIR) [Suspect]
     Indication: HEPATITIS C
     Route: 048
     Dates: start: 20120217, end: 20120223
  3. RIBAVIRIN [Concomitant]
     Route: 048
     Dates: start: 20120316, end: 20120419
  4. RIBAVIRIN [Concomitant]
     Route: 048
     Dates: start: 20120420
  5. PEGINTERFERON ALFA-2B [Concomitant]
     Route: 051
     Dates: start: 20120427, end: 20120510
  6. DIOVAN [Concomitant]
     Route: 048
  7. AMLODIPINE [Concomitant]
     Route: 048
  8. TELAVIC (TELAPREVIR) [Suspect]
     Route: 048
     Dates: start: 20120224, end: 20120322
  9. TELAVIC (TELAPREVIR) [Suspect]
     Route: 048
     Dates: start: 20120323, end: 20120413
  10. RIBAVIRIN [Concomitant]
     Indication: HEPATITIS C
     Route: 048
     Dates: start: 20120217, end: 20120223
  11. PEGINTERFERON ALFA-2B [Concomitant]
     Route: 051
     Dates: start: 20120406, end: 20120426
  12. URSO 250 [Concomitant]
     Route: 048
     Dates: end: 20120224
  13. RIBAVIRIN [Concomitant]
     Route: 048
     Dates: start: 20120224, end: 20120315
  14. PEGINTERFERON ALFA-2B [Concomitant]
     Indication: HEPATITIS C
     Route: 051
     Dates: start: 20120217, end: 20120329
  15. INNOLET [Concomitant]
     Route: 058
  16. PEGINTERFERON ALFA-2B [Concomitant]
     Route: 051
     Dates: start: 20120330
  17. PEGINTERFERON ALFA-2B [Concomitant]
     Route: 051
     Dates: end: 20120405

REACTIONS (6)
  - HYPERURICAEMIA [None]
  - NAUSEA [None]
  - DECREASED APPETITE [None]
  - ANAEMIA [None]
  - BLOOD CREATININE INCREASED [None]
  - PLATELET COUNT DECREASED [None]
